FAERS Safety Report 21275368 (Version 1)
Quarter: 2022Q3

REPORT INFORMATION
  Report Type: Spontaneous
  Country: US (occurrence: None)
  Receive Date: 20220831
  Receipt Date: 20220831
  Transmission Date: 20221027
  Serious: No
  Sender: FDA-Public Use
  Company Number: None

PATIENT
  Age: 36 Year
  Sex: Female
  Weight: 99.79 kg

DRUGS (1)
  1. SKYRIZI [Suspect]
     Active Substance: RISANKIZUMAB-RZAA
     Indication: Psoriasis
     Dosage: OTHER QUANTITY : 150MG (1 SYRINGE);?FREQUENCY : AS DIRECTED;?
     Route: 058
     Dates: start: 202205

REACTIONS (3)
  - Joint injury [None]
  - Back pain [None]
  - Intervertebral disc protrusion [None]
